FAERS Safety Report 24782155 (Version 1)
Quarter: 2024Q4

REPORT INFORMATION
  Report Type: Spontaneous
  Country: US (occurrence: US)
  Receive Date: 20241227
  Receipt Date: 20241227
  Transmission Date: 20250115
  Serious: No
  Sender: TEVA
  Company Number: US-TEVA-VS-3275807

PATIENT
  Age: 71 Year
  Sex: Female

DRUGS (1)
  1. AUSTEDO XR [Suspect]
     Active Substance: DEUTETRABENAZINE
     Indication: Huntington^s disease
     Route: 065
     Dates: start: 20241112

REACTIONS (3)
  - Lethargy [Unknown]
  - Drug ineffective [Unknown]
  - Gait inability [Unknown]

NARRATIVE: CASE EVENT DATE: 20241112
